FAERS Safety Report 22355169 (Version 3)
Quarter: 2023Q2

REPORT INFORMATION
  Report Type: Spontaneous
  Country: US (occurrence: US)
  Receive Date: 20230523
  Receipt Date: 20230629
  Transmission Date: 20230721
  Serious: Yes (Hospitalization, Other)
  Sender: FDA-Public Use
  Company Number: US-GLAXOSMITHKLINE-US2023AMR071945

PATIENT

DRUGS (1)
  1. ZEJULA [Suspect]
     Active Substance: NIRAPARIB
     Indication: Product used for unknown indication
     Dosage: 300 MG, QD

REACTIONS (6)
  - Asthenia [Unknown]
  - Balance disorder [Unknown]
  - White blood cell count decreased [Unknown]
  - Chemotherapy [Unknown]
  - Recurrent cancer [Unknown]
  - Product dose omission issue [Unknown]
